FAERS Safety Report 17705012 (Version 1)
Quarter: 2020Q2

REPORT INFORMATION
  Report Type: Spontaneous
  Country: US (occurrence: US)
  Receive Date: 20200423
  Receipt Date: 20200423
  Transmission Date: 20200714
  Serious: No
  Sender: FDA-Public Use
  Company Number: None

PATIENT
  Age: 65 Year
  Sex: Male

DRUGS (1)
  1. CERTOLIZUMAB (CERTOLIZUMAB PEGOL 200MG/ML INJ, SOLN, SYR, KIT, 2) [Suspect]
     Active Substance: CERTOLIZUMAB PEGOL
     Route: 058
     Dates: start: 20191211, end: 20200203

REACTIONS (1)
  - Rash [None]

NARRATIVE: CASE EVENT DATE: 20200203
